FAERS Safety Report 15352283 (Version 9)
Quarter: 2019Q1

REPORT INFORMATION
  Report Type: Report from Study
  Country: US (occurrence: US)
  Receive Date: 20180905
  Receipt Date: 20190118
  Transmission Date: 20190417
  Serious: Yes (Other)
  Sender: FDA-Public Use
  Company Number: US-BRISTOL-MYERS SQUIBB COMPANY-BMS-2018-081319

PATIENT
  Sex: Male

DRUGS (3)
  1. LEVAQUIN [Concomitant]
     Active Substance: LEVOFLOXACIN
     Indication: PRODUCT USED FOR UNKNOWN INDICATION
     Dosage: 500 MG, UNK
     Route: 065
  2. NIVOLUMAB [Suspect]
     Active Substance: NIVOLUMAB
     Indication: HEPATOCELLULAR CARCINOMA
     Dosage: 240 MG, Q2WK
     Route: 042
     Dates: start: 201711
  3. INSULIN [Concomitant]
     Active Substance: INSULIN NOS
     Indication: DIABETES MELLITUS
     Dosage: UNK
     Route: 065

REACTIONS (39)
  - Varices oesophageal [Recovered/Resolved]
  - Dyspnoea exertional [Unknown]
  - Sinus disorder [Recovering/Resolving]
  - Chromaturia [Recovered/Resolved]
  - Urinary tract infection [Unknown]
  - Myalgia [Recovering/Resolving]
  - Malaise [Unknown]
  - Chest pain [Recovering/Resolving]
  - Eating disorder [Recovered/Resolved]
  - Skin irritation [Recovered/Resolved]
  - Musculoskeletal stiffness [Recovering/Resolving]
  - Dry skin [Unknown]
  - Stress [Unknown]
  - Flushing [Unknown]
  - Ill-defined disorder [Recovered/Resolved]
  - Arthralgia [Recovering/Resolving]
  - Nephrolithiasis [Unknown]
  - Fatigue [Unknown]
  - Nausea [Recovered/Resolved]
  - Asthenia [Unknown]
  - Anxiety [Unknown]
  - Pemphigoid [Not Recovered/Not Resolved]
  - Weight increased [Unknown]
  - Muscular weakness [Unknown]
  - Skin lesion [Unknown]
  - Erectile dysfunction [Unknown]
  - Butterfly rash [Recovered/Resolved]
  - Pyrexia [Unknown]
  - Vomiting [Recovered/Resolved]
  - Ascites [Unknown]
  - Abdominal distension [Unknown]
  - Rash [Recovering/Resolving]
  - Erythema [Unknown]
  - Urine output decreased [Unknown]
  - Pruritus [Recovered/Resolved]
  - Dysuria [Unknown]
  - Chills [Unknown]
  - Poor quality sleep [Unknown]
  - Headache [Recovered/Resolved]
